FAERS Safety Report 9844757 (Version 1)
Quarter: 2014Q1

REPORT INFORMATION
  Report Type: Report from Study
  Country: US (occurrence: US)
  Receive Date: 20140127
  Receipt Date: 20140127
  Transmission Date: 20141002
  Serious: Yes (Other)
  Sender: FDA-Public Use
  Company Number: US-ROCHE-1338730

PATIENT
  Age: 9 Year
  Sex: Male
  Weight: 37.7 kg

DRUGS (3)
  1. NUTROPIN AQ [Suspect]
     Indication: BODY HEIGHT BELOW NORMAL
     Route: 058
     Dates: end: 20140103
  2. NUTROPIN AQ [Suspect]
     Route: 058
     Dates: start: 20140103
  3. SYNTHROID [Concomitant]
     Route: 048

REACTIONS (1)
  - Growth retardation [Unknown]
